FAERS Safety Report 4420476-3 (Version None)
Quarter: 2004Q3

REPORT INFORMATION
  Report Type: 
  Country: None (occurrence: None)
  Receive Date: 20040809
  Receipt Date: 20040308
  Transmission Date: 20050211
  Serious: Yes (Hospitalization)
  Sender: FDA-Public Use
  Company Number: US-GLAXOSMITHKLINE-A0501614A

PATIENT
  Sex: Male

DRUGS (3)
  1. PAXIL CR [Suspect]
     Indication: DEPRESSION
     Dosage: 75MG PER DAY
     Route: 048
     Dates: end: 20040201
  2. LORA TAB [Concomitant]
     Dates: end: 20030201
  3. PHENOBARBITAL TAB [Concomitant]
     Dates: end: 20030201

REACTIONS (1)
  - DRUG WITHDRAWAL SYNDROME [None]
